FAERS Safety Report 5848585-2 (Version None)
Quarter: 2008Q3

REPORT INFORMATION
  Report Type: 
  Country: None (occurrence: None)
  Receive Date: 20080818
  Receipt Date: 20080805
  Transmission Date: 20090109
  Serious: Yes (Other)
  Sender: FDA-Public Use
  Company Number: JP-ROCHE-577916

PATIENT
  Age: 57 Year
  Sex: Male

DRUGS (1)
  1. CEFTRIAXONE (NON-ROCHE/NON-COMPARATOR) [Suspect]
     Indication: DRUG USE FOR UNKNOWN INDICATION
     Dosage: ROUTE REPORTED AS INTRAVENOUS (NOT OTHERWISE SPECIFIED).
     Route: 042
     Dates: start: 20080709, end: 20080719

REACTIONS (1)
  - RENAL FAILURE ACUTE [None]
